FAERS Safety Report 17661584 (Version 1)
Quarter: 2020Q2

REPORT INFORMATION
  Report Type: Spontaneous
  Country: US (occurrence: US)
  Receive Date: 20200413
  Receipt Date: 20200413
  Transmission Date: 20200713
  Serious: Yes (Hospitalization)
  Sender: FDA-Public Use
  Company Number: US-AMNEAL PHARMACEUTICALS-2020-AMRX-01108

PATIENT
  Age: 64 Year
  Sex: Female

DRUGS (2)
  1. AMLODIPINE BESYLATE. [Suspect]
     Active Substance: AMLODIPINE BESYLATE
     Indication: PRODUCT USED FOR UNKNOWN INDICATION
     Dosage: UNKNOWN NUMBER OF PILLS
     Route: 048
  2. LEVOTHYROXINE SODIUM. [Suspect]
     Active Substance: LEVOTHYROXINE SODIUM
     Indication: PRODUCT USED FOR UNKNOWN INDICATION
     Dosage: UNKNOWN NUMBER OF PILLS
     Route: 048

REACTIONS (7)
  - Liver injury [Recovering/Resolving]
  - Leukocytosis [Recovering/Resolving]
  - Rhabdomyolysis [Recovering/Resolving]
  - Shock [Recovering/Resolving]
  - Metabolic acidosis [Recovering/Resolving]
  - Overdose [Unknown]
  - Acute kidney injury [Recovering/Resolving]
